FAERS Safety Report 8585912-X (Version None)
Quarter: 2012Q3

REPORT INFORMATION
  Report Type: 
  Country: None (occurrence: None)
  Receive Date: 20120810
  Receipt Date: 20120801
  Transmission Date: 20120928
  Serious: Yes (Other)
  Sender: FDA-Public Use
  Company Number: US-ASTRAZENECA-2012SE52292

PATIENT
  Age: 57 Year
  Sex: Female

DRUGS (2)
  1. NEXIUM [Suspect]
     Indication: DYSPEPSIA
     Route: 048
  2. NEXIUM [Suspect]
     Indication: GASTROOESOPHAGEAL REFLUX DISEASE
     Route: 048

REACTIONS (8)
  - MULTIPLE SCLEROSIS [None]
  - FALL [None]
  - MUSCLE SPASMS [None]
  - MUSCLE SPASTICITY [None]
  - PARAESTHESIA [None]
  - PAIN IN EXTREMITY [None]
  - HYPOAESTHESIA [None]
  - APHAGIA [None]
